FAERS Safety Report 4609714-1 (Version None)
Quarter: 2005Q1

REPORT INFORMATION
  Report Type: 
  Country: None (occurrence: None)
  Receive Date: 20050314
  Receipt Date: 20050224
  Transmission Date: 20050727
  Serious: Yes (Hospitalization)
  Sender: FDA-Public Use
  Company Number: DSA_24591_2004

PATIENT
  Age: 57 Year
  Sex: Female

DRUGS (11)
  1. TILDIEM [Suspect]
     Dosage: 60 MG TID PO
     Route: 048
  2. TRIATEC [Suspect]
     Dosage: 2.5 MG 3XWK PO
     Route: 048
  3. INDOCIN [Suspect]
     Dosage: 25 MG Q DAY PO
     Route: 048
  4. ARCALION [Concomitant]
  5. TARDYFERON [Concomitant]
  6. ESBERIVEN [Concomitant]
  7. PANTOPRAZOLE SODIUM [Concomitant]
  8. LEXOMIL [Concomitant]
  9. INDOCOLLYRE [Concomitant]
  10. TOBREX [Concomitant]
  11. CELLUVISC [Concomitant]

REACTIONS (7)
  - BLOOD CHLORIDE DECREASED [None]
  - BLOOD GLUCOSE INCREASED [None]
  - C-REACTIVE PROTEIN INCREASED [None]
  - CONDITION AGGRAVATED [None]
  - NEPHRITIS INTERSTITIAL [None]
  - PCO2 DECREASED [None]
  - RENAL FAILURE [None]
